FAERS Safety Report 18056521 (Version 1)
Quarter: 2020Q3

REPORT INFORMATION
  Report Type: Spontaneous
  Country: FR (occurrence: FR)
  Receive Date: 20200722
  Receipt Date: 20200722
  Transmission Date: 20201103
  Serious: Yes (Other)
  Sender: FDA-Public Use
  Company Number: FR-ELI_LILLY_AND_COMPANY-FR202007008737

PATIENT
  Age: 51 Year
  Sex: Female

DRUGS (1)
  1. IXEKIZUMAB [Suspect]
     Active Substance: IXEKIZUMAB
     Indication: PSORIATIC ARTHROPATHY
     Dosage: 160 MG, UNKNOWN
     Route: 058
     Dates: start: 201803

REACTIONS (2)
  - Cerebral venous thrombosis [Recovering/Resolving]
  - Herpes zoster meningoradiculitis [Recovering/Resolving]

NARRATIVE: CASE EVENT DATE: 2018
